FAERS Safety Report 12232225 (Version 2)
Quarter: 2016Q2

REPORT INFORMATION
  Report Type: Report from Study
  Country: BR (occurrence: BR)
  Receive Date: 20160401
  Receipt Date: 20160504
  Transmission Date: 20160815
  Serious: Yes (Disabling, Other)
  Sender: FDA-Public Use
  Company Number: PHHY2016BR043011

PATIENT
  Sex: Female
  Weight: 85 kg

DRUGS (2)
  1. DIOVAN [Suspect]
     Active Substance: VALSARTAN
     Indication: HYPERTENSION
     Route: 048
  2. CODEX [Concomitant]
     Active Substance: ACETAMINOPHEN\CODEINE PHOSPHATE
     Indication: SPINAL DISORDER
     Dosage: 2 DF, QD
     Route: 048
     Dates: start: 1999

REACTIONS (9)
  - Nephrolithiasis [Not Recovered/Not Resolved]
  - Bone disorder [Recovering/Resolving]
  - Renal failure [Not Recovered/Not Resolved]
  - Joint injury [Unknown]
  - Gait disturbance [Recovering/Resolving]
  - Hiatus hernia [Recovered/Resolved]
  - Renal injury [Unknown]
  - Blood pressure increased [Not Recovered/Not Resolved]
  - Renal atrophy [Not Recovered/Not Resolved]

NARRATIVE: CASE EVENT DATE: 1999
